FAERS Safety Report 4881794-8 (Version None)
Quarter: 2006Q1

REPORT INFORMATION
  Report Type: 
  Country: None (occurrence: None)
  Receive Date: 20060117
  Receipt Date: 20060110
  Transmission Date: 20060701
  Serious: Yes (Life-Threatening)
  Sender: FDA-Public Use
  Company Number: IL-NOVOPROD-249942

PATIENT
  Age: 20 Day

DRUGS (1)
  1. NOVOSEVEN [Suspect]
     Indication: INTRAVENTRICULAR HAEMORRHAGE NEONATAL
     Dosage: 2 DOSES OF 300 UG WITH 8 HOURS INTERVAL
     Dates: start: 20060110, end: 20060110

REACTIONS (1)
  - SUPERIOR SAGITTAL SINUS THROMBOSIS [None]
